FAERS Safety Report 12369642 (Version 1)
Quarter: 2016Q2

REPORT INFORMATION
  Report Type: Spontaneous
  Country: US (occurrence: None)
  Receive Date: 20160513
  Receipt Date: 20160513
  Transmission Date: 20160815
  Serious: No
  Sender: FDA-Public Use
  Company Number: None

PATIENT
  Age: 49 Year
  Sex: Female

DRUGS (1)
  1. HARVONI [Suspect]
     Active Substance: LEDIPASVIR\SOFOSBUVIR
     Indication: CHRONIC HEPATITIS C
     Dosage: 90/400 MG
     Route: 048

REACTIONS (4)
  - Pruritus [None]
  - Scab [None]
  - Alopecia [None]
  - Headache [None]

NARRATIVE: CASE EVENT DATE: 20160501
